FAERS Safety Report 10388021 (Version 3)
Quarter: 2015Q1

REPORT INFORMATION
  Report Type: Report from Study
  Country: BR (occurrence: BR)
  Receive Date: 20140815
  Receipt Date: 20150320
  Transmission Date: 20150720
  Serious: Yes (Other)
  Sender: FDA-Public Use
  Company Number: BR-ABBVIE-14P-020-1271147-00

PATIENT
  Age: 52 Year
  Sex: Female
  Weight: 79 kg

DRUGS (10)
  1. TANDRILAX [Concomitant]
     Indication: PAIN
     Dosage: 1 TABLET EVERY OTHER DAY; CAFFEINE/CARISOPRODOL/ACETAMINOPHEN /SODIUM DICLOFENAC
     Route: 048
     Dates: start: 20120801
  2. LEVOTHYROXINE SODIUM. [Concomitant]
     Active Substance: LEVOTHYROXINE SODIUM
     Indication: THYROID DISORDER
     Route: 048
     Dates: start: 2013
  3. OMEPRAZOLE. [Concomitant]
     Active Substance: OMEPRAZOLE
     Indication: GASTRIC DISORDER
     Route: 048
  4. METICORTEN [Concomitant]
     Active Substance: PREDNISONE
     Indication: PAIN
     Dosage: 1 TABLET EVERY OTHER DAY
     Route: 048
     Dates: start: 19870101
  5. METHOTREXATE [Concomitant]
     Active Substance: METHOTREXATE
     Indication: ARTHRITIS
     Dosage: ON FRIDAYS
     Route: 058
     Dates: start: 20120910
  6. NAPROSYN [Concomitant]
     Active Substance: NAPROXEN
     Indication: ARTHRITIS
     Route: 048
  7. GLIMEPIRIDE. [Concomitant]
     Active Substance: GLIMEPIRIDE
     Indication: DIABETES MELLITUS
     Route: 048
     Dates: start: 2012
  8. HUMIRA [Suspect]
     Active Substance: ADALIMUMAB
     Indication: RHEUMATOID ARTHRITIS
     Route: 058
     Dates: start: 20120910, end: 201410
  9. PREDNISONE. [Concomitant]
     Active Substance: PREDNISONE
     Indication: ARTHRITIS
     Route: 048
  10. ATENOLOL. [Concomitant]
     Active Substance: ATENOLOL
     Indication: BLOOD PRESSURE ABNORMAL
     Route: 048

REACTIONS (10)
  - Weight decreased [Unknown]
  - Breast induration [Not Recovered/Not Resolved]
  - Breast cancer stage IV [Recovering/Resolving]
  - Nipple disorder [Not Recovered/Not Resolved]
  - Hepatic cancer [Recovering/Resolving]
  - Mobility decreased [Not Recovered/Not Resolved]
  - Pain in extremity [Not Recovered/Not Resolved]
  - Breast calcifications [Not Recovered/Not Resolved]
  - Back pain [Not Recovered/Not Resolved]
  - Diarrhoea [Unknown]

NARRATIVE: CASE EVENT DATE: 20121001
